FAERS Safety Report 8940860 (Version 1)
Quarter: 2012Q4

REPORT INFORMATION
  Report Type: 
  Country: TH (occurrence: TH)
  Receive Date: 20121203
  Receipt Date: 20121203
  Transmission Date: 20130627
  Serious: Yes (Life-Threatening, Hospitalization)
  Sender: FDA-Public Use
  Company Number: TH-SANOFI-AVENTIS-2012SA086769

PATIENT
  Age: 79 Year
  Sex: Female

DRUGS (71)
  1. CLOPIDOGREL BISULFATE [Suspect]
     Indication: DRUG USE FOR UNKNOWN INDICATION
     Route: 065
  2. ASPIRIN [Suspect]
     Indication: DRUG USE FOR UNKNOWN INDICATION
     Route: 065
     Dates: start: 20120122
  3. ASPIRIN [Suspect]
     Indication: DRUG USE FOR UNKNOWN INDICATION
     Route: 065
     Dates: start: 20120912
  4. BLINDED THERAPY [Suspect]
     Indication: CARDIOVASCULAR EVENT PROPHYLAXIS
     Route: 048
     Dates: start: 20120208
  5. PLAVIX [Concomitant]
     Dates: start: 20120121, end: 20120121
  6. PLAVIX [Concomitant]
     Dates: start: 20120122
  7. ENOXAPARIN [Concomitant]
     Dates: start: 20120122, end: 20120122
  8. TRIMETAZIDINE HYDROCHLORIDE [Concomitant]
     Dates: start: 20120122
  9. MICARDIS [Concomitant]
     Dates: start: 20120122, end: 20120312
  10. MICARDIS [Concomitant]
     Dates: start: 20120321
  11. SIMVASTATIN [Concomitant]
     Dates: start: 20120122
  12. ATIVAN [Concomitant]
     Dates: start: 20120122, end: 20120124
  13. ATIVAN [Concomitant]
     Dates: start: 20120526
  14. SENNA [Concomitant]
     Dates: start: 20120122, end: 20120312
  15. SENNA [Concomitant]
     Dates: start: 20120805
  16. ENALAPRIL [Concomitant]
     Dates: start: 20120122, end: 20120125
  17. LASIX [Concomitant]
     Dates: start: 20120121, end: 20120121
  18. LASIX [Concomitant]
     Dates: start: 20120122, end: 20120122
  19. LASIX [Concomitant]
     Dates: start: 20120124, end: 20120124
  20. LASIX [Concomitant]
     Dates: start: 20120125, end: 20120125
  21. LASIX [Concomitant]
     Dates: start: 20120321
  22. LASIX [Concomitant]
     Dates: start: 20121008
  23. LASIX [Concomitant]
     Dates: start: 20121022
  24. LASIX [Concomitant]
     Dosage: continuous
     Dates: start: 20120725, end: 20120725
  25. TRAMADOL [Concomitant]
     Dates: start: 20120122, end: 20120122
  26. XANAX [Concomitant]
     Dates: start: 20120125, end: 20120312
  27. GLIPIZIDE [Concomitant]
     Dates: start: 20120127, end: 20120206
  28. GLIPIZIDE [Concomitant]
     Dates: start: 20120526
  29. ISORDIL [Concomitant]
     Dates: start: 20120125, end: 20120312
  30. CONCOR [Concomitant]
     Dates: start: 20120127, end: 20120312
  31. GLUCOPHAGE [Concomitant]
     Dates: start: 20120207
  32. HUMULIN R [Concomitant]
     Dosage: Dose:15 unit(s)
     Dates: start: 20120207, end: 20120312
  33. HUMULIN R [Concomitant]
     Dosage: Dose:10 unit(s)
     Dates: start: 20120207, end: 20120312
  34. HUMULIN R [Concomitant]
     Dosage: Dose:12 unit(s)
     Dates: start: 20120726, end: 20120726
  35. HUMULIN R [Concomitant]
     Dosage: Dose:14 unit(s)
     Dates: start: 20120726, end: 20120727
  36. ISOSORBIDE MONONITRATE [Concomitant]
     Dates: start: 20120313
  37. ISOSORBIDE MONONITRATE [Concomitant]
     Dates: start: 20120527
  38. INSULATARD [Concomitant]
     Dosage: Dose:20 unit(s)
     Dates: start: 20120313, end: 20120320
  39. INSULATARD [Concomitant]
     Dosage: Dose:10 unit(s)
     Dates: start: 20120321, end: 20120326
  40. INSULATARD [Concomitant]
     Dosage: Dose:20 unit(s)
     Dates: start: 20120810
  41. INSULATARD [Concomitant]
     Dosage: Dose:6 unit(s)
     Dates: start: 20120810
  42. ENALAPRIL MALEATE [Concomitant]
     Dates: start: 20120321, end: 20120526
  43. KLACID [Concomitant]
     Dates: start: 20120321
  44. OMEPRAZOLE [Concomitant]
     Dates: start: 20120321, end: 20120526
  45. KCL [Concomitant]
     Dates: start: 20120526, end: 20120526
  46. MILK OF MAGNESIA [Concomitant]
     Dates: start: 20120728, end: 20120728
  47. INSULIN, REGULAR [Concomitant]
     Dosage: Dose:4 unit(s)
     Dates: start: 20120725, end: 20120725
  48. INSULIN, REGULAR [Concomitant]
     Dosage: Dose:14 unit(s)
     Dates: start: 20120727, end: 20120728
  49. INSULIN, REGULAR [Concomitant]
     Dosage: Dose:16 unit(s)
     Dates: start: 20120728, end: 20120729
  50. INSULIN, REGULAR [Concomitant]
     Dosage: Dose:18 unit(s)
     Dates: start: 20120729, end: 20120729
  51. INSULIN, REGULAR [Concomitant]
     Dosage: Dose:20 unit(s)
     Dates: start: 20120730, end: 20120801
  52. INSULIN, REGULAR [Concomitant]
     Dosage: Dose:16 unit(s)
     Dates: start: 20120731, end: 20120801
  53. INSULIN, REGULAR [Concomitant]
     Dosage: Dose:14 unit(s)
     Dates: start: 20120802, end: 20120802
  54. HUMULIN N [Concomitant]
     Dosage: Dose:14 unit(s)
     Dates: start: 20120730, end: 20120730
  55. HUMULIN N [Concomitant]
     Dosage: Dose:10 unit(s)
     Dates: start: 20120731, end: 20120731
  56. HUMULIN N [Concomitant]
     Dosage: Dose:8 unit(s)
     Dates: start: 20120801, end: 20120801
  57. HUMULIN 70/30 [Concomitant]
     Dosage: Dose:20 unit(s)
     Dates: start: 20120802, end: 20120802
  58. HUMULIN 70/30 [Concomitant]
     Dosage: Dose:14 unit(s)
     Dates: start: 20120803, end: 20120803
  59. HUMULIN 70/30 [Concomitant]
     Dosage: Dose:20 unit(s)
     Dates: start: 20120804, end: 20120805
  60. HUMULIN 70/30 [Concomitant]
     Dosage: Dose:14 unit(s)
     Dates: start: 20120804, end: 20120804
  61. HUMULIN 70/30 [Concomitant]
     Dosage: Dose:18 unit(s)
     Dates: start: 20120805, end: 20120805
  62. HUMULIN 70/30 [Concomitant]
     Dosage: Dose:14 unit(s)
     Dates: start: 20120806, end: 20120806
  63. HUMULIN 70/30 [Concomitant]
     Dosage: Dose:20 unit(s)
     Dates: start: 20120807, end: 20120807
  64. HUMULIN 70/30 [Concomitant]
     Dosage: Dose:14 unit(s)
     Dates: start: 20120807, end: 20120808
  65. HUMULIN 70/30 [Concomitant]
     Dosage: Dose:10 unit(s)
     Dates: start: 20120809, end: 20120809
  66. ALDACTONE [Concomitant]
     Dates: start: 20121005, end: 20121006
  67. ALDACTONE [Concomitant]
     Dates: start: 20121022
  68. FERROUS SULFATE [Concomitant]
     Dates: start: 20121008
  69. IVABRADINE HYDROCHLORIDE [Concomitant]
     Dates: start: 20120827, end: 20121004
  70. IVABRADINE HYDROCHLORIDE [Concomitant]
     Dates: start: 20120912
  71. ISMO [Concomitant]
     Dates: start: 20120827, end: 20121005

REACTIONS (3)
  - Acute pulmonary oedema [Recovered/Resolved]
  - Cardiac failure congestive [Unknown]
  - Duodenal ulcer haemorrhage [Recovered/Resolved]
